FAERS Safety Report 9345081 (Version 1)
Quarter: 2013Q2

REPORT INFORMATION
  Report Type: Spontaneous
  Country: US (occurrence: US)
  Receive Date: 20130612
  Receipt Date: 20130612
  Transmission Date: 20140414
  Serious: Yes (Other)
  Sender: FDA-Public Use
  Company Number: US-US-EMD SERONO, INC.-7103609

PATIENT
  Age: 21 Year
  Sex: Female
  Weight: 77 kg

DRUGS (4)
  1. REBIF [Suspect]
     Indication: MULTIPLE SCLEROSIS
     Dates: end: 201112
  2. REBIF [Suspect]
     Route: 058
  3. ALBUTEROL                          /00139501/ [Concomitant]
     Indication: ASTHMA
  4. MOTRIN [Concomitant]
     Indication: INJECTION SITE PAIN

REACTIONS (3)
  - Abortion spontaneous [Recovered/Resolved]
  - Injection site pain [Unknown]
  - Maternal exposure timing unspecified [Recovered/Resolved]
